FAERS Safety Report 9311530 (Version 1)
Quarter: 2013Q2

REPORT INFORMATION
  Report Type: Spontaneous
  Country: US (occurrence: US)
  Receive Date: 20130528
  Receipt Date: 20130528
  Transmission Date: 20140414
  Serious: Yes (Death)
  Sender: FDA-Public Use
  Company Number: US-SANOFI-AVENTIS-2013SA052665

PATIENT
  Age: 57 Year
  Sex: Male

DRUGS (2)
  1. APIDRA [Suspect]
     Dosage: DOSE:78 UNIT(S)
     Route: 058
     Dates: end: 20130515
  2. LANTUS [Suspect]
     Dosage: DOSE:60 UNIT(S)
     Route: 058
     Dates: end: 20130515

REACTIONS (1)
  - Death [Fatal]
